FAERS Safety Report 13096058 (Version 5)
Quarter: 2017Q1

REPORT INFORMATION
  Report Type: Report from Study
  Country: ES (occurrence: ES)
  Receive Date: 20170109
  Receipt Date: 20170303
  Transmission Date: 20170428
  Serious: Yes (Other)
  Sender: FDA-Public Use
  Company Number: ES-ROCHE-1874173

PATIENT
  Age: 46 Year
  Sex: Female
  Weight: 88.3 kg

DRUGS (9)
  1. TRASTUZUMAB EMTANSINE [Suspect]
     Active Substance: ADO-TRASTUZUMAB EMTANSINE
     Indication: HER-2 POSITIVE BREAST CANCER
     Dosage: LAST DOSE PRIOR TO SAE: 10/JUN/2016 OF 331 MG AT 15:00
     Route: 042
     Dates: start: 20150430
  2. METAMIZOL [Concomitant]
     Active Substance: METAMIZOLE SODIUM
     Route: 065
     Dates: start: 20151215, end: 20151215
  3. PERTUZUMAB [Suspect]
     Active Substance: PERTUZUMAB
     Indication: HER-2 POSITIVE BREAST CANCER
     Route: 042
     Dates: start: 20150430, end: 20150430
  4. PERTUZUMAB [Suspect]
     Active Substance: PERTUZUMAB
     Dosage: LAST DOSE PRIOR TO SAE: 10/JUN/2016 AT 13:51
     Route: 042
     Dates: start: 20150521
  5. PARACETAMOL [Concomitant]
     Active Substance: ACETAMINOPHEN
     Route: 065
     Dates: start: 20150619, end: 20150621
  6. PARACETAMOL [Concomitant]
     Active Substance: ACETAMINOPHEN
     Route: 065
     Dates: start: 20151115, end: 20151208
  7. METAMIZOL [Concomitant]
     Active Substance: METAMIZOLE SODIUM
     Route: 065
     Dates: start: 20151017, end: 20151019
  8. IBUPROFEN. [Concomitant]
     Active Substance: IBUPROFEN
  9. ENALAPRIL [Concomitant]
     Active Substance: ENALAPRIL
     Route: 065
     Dates: start: 20150609

REACTIONS (2)
  - Hepatic cirrhosis [Not Recovered/Not Resolved]
  - Portal hypertension [Not Recovered/Not Resolved]

NARRATIVE: CASE EVENT DATE: 20160926
